FAERS Safety Report 5721214-4 (Version None)
Quarter: 2008Q2

REPORT INFORMATION
  Report Type: 
  Country: None (occurrence: None)
  Receive Date: 20080428
  Receipt Date: 20080428
  Transmission Date: 20081010
  Serious: Yes (Other)
  Sender: FDA-Public Use
  Company Number: None

PATIENT
  Age: 2 Year
  Sex: Male
  Weight: 18.1439 kg

DRUGS (3)
  1. ABILIFY [Suspect]
     Indication: ATTENTION DEFICIT/HYPERACTIVITY DISORDER
  2. RITALIN [Suspect]
  3. CLONIDINE [Suspect]
     Dosage: QHS PO
     Route: 048

REACTIONS (3)
  - FEELING HOT [None]
  - IRRITABILITY [None]
  - OFF LABEL USE [None]
